FAERS Safety Report 4873185-0 (Version None)
Quarter: 2005Q4

REPORT INFORMATION
  Report Type: 
  Country: None (occurrence: None)
  Receive Date: 20051201
  Receipt Date: 20050826
  Transmission Date: 20060501
  Serious: No
  Sender: FDA-Public Use
  Company Number: 2005PV001266

PATIENT
  Age: 52 Year
  Sex: Female
  Weight: 79.3795 kg

DRUGS (8)
  1. BYETTA [Suspect]
     Indication: DIABETES MELLITUS NON-INSULIN-DEPENDENT
     Dosage: 5 MCG; BID; SC
     Route: 058
     Dates: start: 20050725, end: 20050825
  2. SYNTHROID [Concomitant]
  3. CHLORTALIDONE/ATENOLOL [Concomitant]
  4. LISINOPRIL [Concomitant]
  5. GLUCOPHAGE [Concomitant]
  6. AVANDIA [Concomitant]
  7. AMARYL [Concomitant]
  8. ASPIRIN [Concomitant]

REACTIONS (5)
  - BLOOD POTASSIUM DECREASED [None]
  - BLOOD PRESSURE INCREASED [None]
  - HEADACHE [None]
  - HYPERHIDROSIS [None]
  - NAUSEA [None]
